FAERS Safety Report 14825730 (Version 2)
Quarter: 2018Q2

REPORT INFORMATION
  Report Type: Report from Study
  Country: FR (occurrence: FR)
  Receive Date: 20180430
  Receipt Date: 20180627
  Transmission Date: 20180711
  Serious: Yes (Other)
  Sender: FDA-Public Use
  Company Number: FR-VELOXIS PHARMACEUTICALS-2046796

PATIENT
  Age: 82 Year
  Sex: Male
  Weight: 70 kg

DRUGS (34)
  1. ADVAGRAF [Concomitant]
     Active Substance: TACROLIMUS
     Dosage: 6 MG, QD
     Dates: start: 20171011, end: 20171027
  2. ADVAGRAF [Concomitant]
     Active Substance: TACROLIMUS
     Dosage: 10 MG, QD
     Dates: start: 20171202, end: 20171223
  3. ARANESP [Concomitant]
     Active Substance: DARBEPOETIN ALFA
     Indication: ANAEMIA
     Dosage: 60 ?G EVERY 15 DAYS
     Dates: start: 20180207
  4. INEXIUM                            /01479302/ [Concomitant]
     Active Substance: ESOMEPRAZOLE MAGNESIUM
     Indication: PROPHYLAXIS
     Dosage: 40 MG, QD
     Dates: start: 20180207, end: 20180610
  5. ADVAGRAF [Concomitant]
     Active Substance: TACROLIMUS
     Dosage: 12 MG, QD
     Dates: start: 20171116, end: 20171201
  6. ADVAGRAF [Concomitant]
     Active Substance: TACROLIMUS
     Dosage: 7 MG, QD
     Dates: start: 20180207, end: 20180307
  7. COUMADINE [Concomitant]
     Active Substance: WARFARIN SODIUM
     Indication: CARDIOVASCULAR EVENT PROPHYLAXIS
     Dosage: 3 DF (DOSE ADJUSTMENT DEPENDING ON INR)
     Dates: start: 20180207
  8. INEXIUM                            /01479302/ [Concomitant]
     Active Substance: ESOMEPRAZOLE MAGNESIUM
     Dosage: 20 MG, QD
     Dates: start: 20180611
  9. ENVARSUS XR [Suspect]
     Active Substance: TACROLIMUS
     Dosage: 7 MG, QD
     Route: 048
     Dates: start: 20180411
  10. ADVAGRAF [Concomitant]
     Active Substance: TACROLIMUS
     Dosage: 5 MG, QD
     Dates: start: 20171224, end: 20180206
  11. LANTUS [Concomitant]
     Active Substance: INSULIN GLARGINE
     Dosage: 14 IU, QD
     Dates: start: 20180412
  12. ADVAGRAF [Concomitant]
     Active Substance: TACROLIMUS
     Dosage: 4 MG, QD
     Dates: start: 20170930, end: 20171006
  13. ADVAGRAF [Concomitant]
     Active Substance: TACROLIMUS
     Dosage: 9 MG, QD
     Dates: start: 20171028, end: 20171115
  14. ADVAGRAF [Concomitant]
     Active Substance: TACROLIMUS
     Dosage: 12 MG, QD
     Dates: start: 20170913, end: 20170921
  15. PAROXETINE. [Concomitant]
     Active Substance: PAROXETINE
     Indication: DEPRESSION
     Dosage: 20 MG, QD
     Dates: start: 20171116
  16. SODIUM BICARBONATE. [Concomitant]
     Active Substance: SODIUM BICARBONATE
     Indication: METABOLIC ACIDOSIS
     Dosage: 2 G, QD
     Dates: start: 20180123, end: 20180411
  17. ENVARSUS XR [Suspect]
     Active Substance: TACROLIMUS
     Indication: PROPHYLAXIS AGAINST TRANSPLANT REJECTION
     Dosage: 5 MG, QD
     Route: 048
     Dates: start: 20180307, end: 20180329
  18. ENVARSUS XR [Suspect]
     Active Substance: TACROLIMUS
     Dosage: 6 MG, QD
     Route: 048
     Dates: start: 20180330, end: 20180410
  19. ADVAGRAF [Concomitant]
     Active Substance: TACROLIMUS
     Dosage: 12 MG, QD
     Dates: start: 20170826, end: 20170828
  20. ADVAGRAF [Concomitant]
     Active Substance: TACROLIMUS
     Dosage: 10 MG, QD
     Dates: start: 20170904, end: 20170905
  21. ADVAGRAF [Concomitant]
     Active Substance: TACROLIMUS
     Dosage: 3 MG, QD
     Dates: start: 20171007, end: 20171010
  22. NOVORAPID [Concomitant]
     Active Substance: INSULIN ASPART
     Indication: TYPE 2 DIABETES MELLITUS
     Dosage: 12 IU, QD
     Dates: start: 20171224
  23. LASILIX                            /00032601/ [Concomitant]
     Active Substance: FUROSEMIDE
     Indication: OEDEMA
     Dosage: 250 MG, QD
     Dates: start: 20180208
  24. KARDEGIC [Concomitant]
     Active Substance: ASPIRIN DL-LYSINE
     Indication: CARDIOVASCULAR EVENT PROPHYLAXIS
     Dosage: 75 MG, QD
     Dates: start: 20180412
  25. ADVAGRAF [Concomitant]
     Active Substance: TACROLIMUS
     Indication: RENAL TRANSPLANT
     Dosage: 8 MG, QD
     Dates: start: 20170825, end: 20170825
  26. ADVAGRAF [Concomitant]
     Active Substance: TACROLIMUS
     Dosage: 10 MG, QD
     Dates: start: 20170829, end: 20170831
  27. ADVAGRAF [Concomitant]
     Active Substance: TACROLIMUS
     Dosage: 8 MG, QD
     Dates: start: 20170901, end: 20170903
  28. ADVAGRAF [Concomitant]
     Active Substance: TACROLIMUS
     Dosage: 6 MG, QD
     Dates: start: 20170922, end: 20170929
  29. PLAVIX [Concomitant]
     Active Substance: CLOPIDOGREL BISULFATE
     Indication: CARDIOVASCULAR EVENT PROPHYLAXIS
     Dosage: 75 MG, QD
     Dates: start: 20180112, end: 20180411
  30. ADVAGRAF [Concomitant]
     Active Substance: TACROLIMUS
     Dosage: 13 MG, QD
     Dates: start: 20170906, end: 20170912
  31. CORTANCYL [Concomitant]
     Active Substance: PREDNISONE
     Indication: RENAL TRANSPLANT
     Dosage: 5 MG, QD
     Dates: start: 20170827
  32. LEVOTHYROX [Concomitant]
     Active Substance: LEVOTHYROXINE
     Indication: HYPOTHYROIDISM
     Dosage: 112.5 ?G, QD
     Dates: start: 20170826
  33. LANTUS [Concomitant]
     Active Substance: INSULIN GLARGINE
     Indication: TYPE 2 DIABETES MELLITUS
     Dosage: 11 IU, QD
     Dates: start: 20180105, end: 20180411
  34. MYFORTIC [Concomitant]
     Active Substance: MYCOPHENOLATE SODIUM
     Indication: RENAL TRANSPLANT
     Dosage: 720 MG, QD
     Dates: start: 20170825

REACTIONS (3)
  - Renal impairment [Recovered/Resolved]
  - Diarrhoea [Recovered/Resolved]
  - Amyloidosis senile [Recovered/Resolved with Sequelae]

NARRATIVE: CASE EVENT DATE: 20180328
